FAERS Safety Report 10527949 (Version 1)
Quarter: 2014Q4

REPORT INFORMATION
  Report Type: Spontaneous
  Country: US (occurrence: None)
  Receive Date: 20141016
  Receipt Date: 20141016
  Transmission Date: 20150528
  Serious: Yes (Hospitalization, Other)
  Sender: FDA-Public Use
  Company Number: 2014SCAL000158

PATIENT
  Age: 35 Year
  Sex: Male

DRUGS (2)
  1. LITHIUM CARBONATE (LITHIUM CARBONATE) UNKNOWN [Suspect]
     Active Substance: LITHIUM CARBONATE
     Indication: MANIA
  2. RISPERIDONE (RISPERIDONE) [Suspect]
     Active Substance: RISPERIDONE
     Indication: PRODUCT USED FOR UNKNOWN INDICATION
     Route: 048

REACTIONS (8)
  - Lethargy [None]
  - Tongue dry [None]
  - Pyrexia [None]
  - Muscle rigidity [None]
  - Blood sodium increased [None]
  - Skin turgor decreased [None]
  - Dehydration [None]
  - Neuroleptic malignant syndrome [None]

NARRATIVE: CASE EVENT DATE: 200902
